FAERS Safety Report 9147610 (Version 2)
Quarter: 2013Q2

REPORT INFORMATION
  Report Type: Report from Study
  Country: BR (occurrence: BR)
  Receive Date: 20130307
  Receipt Date: 20130403
  Transmission Date: 20140414
  Serious: Yes (Hospitalization)
  Sender: FDA-Public Use
  Company Number: BR-ACTELION-A-CH2013-80252

PATIENT
  Age: 24 Year
  Sex: Female

DRUGS (2)
  1. TRACLEER [Suspect]
     Indication: PULMONARY ARTERIAL HYPERTENSION
     Dosage: 125 MG, BID
     Route: 048
  2. SILDENAFIL [Concomitant]

REACTIONS (3)
  - Fatigue [Recovered/Resolved]
  - Syncope [Recovered/Resolved]
  - No therapeutic response [Unknown]
